FAERS Safety Report 4313312-7 (Version None)
Quarter: 2004Q1

REPORT INFORMATION
  Report Type: 
  Country: None (occurrence: None)
  Receive Date: 20040304
  Receipt Date: 20040223
  Transmission Date: 20041129
  Serious: Yes (Congenital Anomaly)
  Sender: FDA-Public Use
  Company Number: 2004011727

PATIENT
  Sex: Female

DRUGS (2)
  1. VIRACEPT [Suspect]
     Indication: HIV INFECTION
     Dosage: 2500 MG, ORAL
     Route: 048
     Dates: start: 20040213
  2. KALETRA [Suspect]
     Indication: HIV INFECTION
     Dosage: 398 MG (BID), ORAL
     Route: 048
     Dates: start: 20040206, end: 20040213

REACTIONS (3)
  - FOETAL CARDIAC DISORDER [None]
  - MATERNAL DRUGS AFFECTING FOETUS [None]
  - ULTRASOUND ANTENATAL SCREEN ABNORMAL [None]
